FAERS Safety Report 9276934 (Version 1)
Quarter: 2013Q2

REPORT INFORMATION
  Report Type: Spontaneous
  Country: SE (occurrence: SE)
  Receive Date: 20130507
  Receipt Date: 20130507
  Transmission Date: 20140414
  Serious: Yes (Other)
  Sender: FDA-Public Use
  Company Number: SE-WATSON-2013-08331

PATIENT
  Age: 67 Year
  Sex: Female

DRUGS (4)
  1. SERTRALINE HYDROCHLORIDE (UNKNOWN) [Suspect]
     Indication: ANXIETY
     Dosage: 50 MG, UNKNOWN
     Route: 065
     Dates: start: 20130404, end: 20130406
  2. SERTRALINE HYDROCHLORIDE (UNKNOWN) [Suspect]
     Dosage: 100 MG, UNK
     Route: 065
     Dates: start: 20130227
  3. SERTRALINE HYDROCHLORIDE (UNKNOWN) [Suspect]
     Dosage: 50 MG, UNK
     Route: 065
     Dates: start: 20130221
  4. MIRTAZAPINE (UNKNOWN) [Suspect]
     Indication: ANXIETY
     Dosage: UNK
     Route: 065
     Dates: start: 20130409

REACTIONS (2)
  - Vision blurred [Recovered/Resolved]
  - Anxiety [Recovered/Resolved]
